FAERS Safety Report 5009858-9 (Version None)
Quarter: 2006Q2

REPORT INFORMATION
  Report Type: 
  Country: None (occurrence: None)
  Receive Date: 20060522
  Receipt Date: 20060507
  Transmission Date: 20061013
  Serious: Yes (Other)
  Sender: FDA-Public Use
  Company Number: 14016

PATIENT
  Age: 7 Year
  Sex: Female
  Weight: 44 kg

DRUGS (6)
  1. MORPHINE [Suspect]
     Indication: SPINAL FUSION SURGERY
     Dosage: 2.5 MG ONCE OTHER
  2. MIDAZOLAM HCL [Concomitant]
  3. SEVOFLURANE [Concomitant]
  4. NITROUS OXIDE W/ OXYGEN [Concomitant]
  5. OXYGEN [Concomitant]
  6. REMIFENTANIL [Concomitant]

REACTIONS (3)
  - MOTOR DYSFUNCTION [None]
  - PROCEDURAL COMPLICATION [None]
  - SOMATOSENSORY EVOKED POTENTIALS ABNORMAL [None]
